FAERS Safety Report 17999358 (Version 1)
Quarter: 2020Q3

REPORT INFORMATION
  Report Type: Spontaneous
  Country: CZ (occurrence: CZ)
  Receive Date: 20200709
  Receipt Date: 20200709
  Transmission Date: 20201103
  Serious: Yes (Other)
  Sender: FDA-Public Use
  Company Number: CZ-ACCORD-189437

PATIENT
  Age: 56 Year

DRUGS (1)
  1. FLUOROURACIL. [Suspect]
     Active Substance: FLUOROURACIL
     Indication: CHEMOTHERAPY

REACTIONS (1)
  - Gastrointestinal toxicity [Unknown]

NARRATIVE: CASE EVENT DATE: 2020
